FAERS Safety Report 15892532 (Version 1)
Quarter: 2019Q1

REPORT INFORMATION
  Report Type: Report from Study
  Country: US (occurrence: US)
  Receive Date: 20190130
  Receipt Date: 20190130
  Transmission Date: 20190417
  Serious: No
  Sender: FDA-Public Use
  Company Number: US-EXELIXIS-CABO-18015203

PATIENT
  Age: 66 Year
  Sex: Male

DRUGS (6)
  1. METOPROLOL. [Concomitant]
     Active Substance: METOPROLOL
     Dosage: UNK
  2. CABOMETYX [Suspect]
     Active Substance: CABOZANTINIB S-MALATE
     Indication: RENAL CANCER
     Dosage: 60 MG, QD( FOR 30 DAYS)
     Route: 048
     Dates: start: 20180706
  3. FLOMAX [Concomitant]
     Active Substance: TAMSULOSIN HYDROCHLORIDE
     Dosage: UNK
  4. GLIPIZIDE. [Concomitant]
     Active Substance: GLIPIZIDE
     Dosage: UNK
  5. AMLODIPINE BESYLATE. [Concomitant]
     Active Substance: AMLODIPINE BESYLATE
  6. VOTRIENT [Concomitant]
     Active Substance: PAZOPANIB HYDROCHLORIDE
     Dosage: UNK

REACTIONS (4)
  - Constipation [Recovering/Resolving]
  - Chromaturia [Recovering/Resolving]
  - Nausea [Not Recovered/Not Resolved]
  - Fatigue [Not Recovered/Not Resolved]

NARRATIVE: CASE EVENT DATE: 201807
